FAERS Safety Report 8501481-4 (Version None)
Quarter: 2012Q3

REPORT INFORMATION
  Report Type: 
  Country: None (occurrence: None)
  Receive Date: 20120710
  Receipt Date: 20120703
  Transmission Date: 20120928
  Serious: Yes (Other)
  Sender: FDA-Public Use
  Company Number: GB-JNJFOC-20120500980

PATIENT
  Age: 85 Year
  Sex: Female
  Weight: 54 kg

DRUGS (3)
  1. METHOTREXATE [Concomitant]
     Indication: RHEUMATOID ARTHRITIS
  2. REMICADE [Suspect]
     Indication: RHEUMATOID ARTHRITIS
     Route: 042
     Dates: start: 20011207
  3. STEROIDS NOS [Concomitant]
     Indication: RHEUMATOID ARTHRITIS

REACTIONS (2)
  - COLON CANCER [None]
  - SKIN CANCER [None]
